FAERS Safety Report 25755813 (Version 1)
Quarter: 2025Q3

REPORT INFORMATION
  Report Type: Spontaneous
  Country: EU (occurrence: EU)
  Receive Date: 20250903
  Receipt Date: 20250903
  Transmission Date: 20251020
  Serious: Yes (Life-Threatening)
  Sender: TAKEDA
  Company Number: None

PATIENT
  Age: 25 Year
  Sex: Female
  Weight: 67 kg

DRUGS (2)
  1. ICATIBANT ACETATE [Suspect]
     Active Substance: ICATIBANT ACETATE
     Indication: Angioedema
     Dates: start: 20250816, end: 20250816
  2. ICATIBANT ACETATE [Suspect]
     Active Substance: ICATIBANT ACETATE
     Indication: Hereditary angioedema

REACTIONS (1)
  - Drug ineffective [Recovering/Resolving]

NARRATIVE: CASE EVENT DATE: 20250816
